FAERS Safety Report 7822617-4 (Version None)
Quarter: 2011Q4

REPORT INFORMATION
  Report Type: 
  Country: None (occurrence: None)
  Receive Date: 20111018
  Receipt Date: 20110930
  Transmission Date: 20120403
  Serious: Yes (Hospitalization)
  Sender: FDA-Public Use
  Company Number: BR-US-EMD SERONO, INC.-7089764

PATIENT
  Sex: Female

DRUGS (4)
  1. GINKGO BILOBA [Concomitant]
  2. REBIF [Suspect]
     Indication: RELAPSING-REMITTING MULTIPLE SCLEROSIS
     Route: 058
     Dates: start: 20070702
  3. VITAMIN D [Concomitant]
  4. DIOSMIN [Concomitant]

REACTIONS (2)
  - URINARY INCONTINENCE [None]
  - MUSCULAR WEAKNESS [None]
